FAERS Safety Report 8317463-1 (Version None)
Quarter: 2012Q2

REPORT INFORMATION
  Report Type: 
  Country: None (occurrence: None)
  Receive Date: 20120427
  Receipt Date: 20120417
  Transmission Date: 20120825
  Serious: Yes (Hospitalization, Other)
  Sender: FDA-Public Use
  Company Number: US-ELI_LILLY_AND_COMPANY-US201010000818

PATIENT
  Sex: Female
  Weight: 46.712 kg

DRUGS (19)
  1. FORTEO [Suspect]
     Dosage: 20 UG, QD
     Route: 065
  2. FORTEO [Suspect]
     Dosage: 20 UG, QD
     Route: 065
  3. OXYGEN [Concomitant]
  4. DIURETICS [Concomitant]
  5. FORTEO [Suspect]
     Dosage: 20 UG, QD
     Route: 065
  6. ADVAIR DISKUS 100/50 [Concomitant]
  7. FORTEO [Suspect]
     Dosage: 20 UG, QD
     Route: 065
  8. FORTEO [Suspect]
     Dosage: 20 U, QD
     Route: 065
  9. CALCIUM [Concomitant]
  10. ANTIHYPERTENSIVES [Concomitant]
     Indication: HYPERTENSION
  11. VENTOLIN [Concomitant]
  12. FORTEO [Suspect]
     Indication: OSTEOPOROSIS
     Dosage: 20 UG, QD
     Route: 065
     Dates: start: 20091201
  13. FORTEO [Suspect]
     Dosage: 20 UG, QD
     Route: 065
     Dates: end: 20111201
  14. FORTEO [Suspect]
     Dosage: 20 UG, QD
     Route: 065
  15. PREDNISONE [Concomitant]
  16. FORTEO [Suspect]
     Dosage: 20 UG, QD
     Route: 065
  17. ATROVENT [Concomitant]
  18. PLAVIX [Concomitant]
  19. ASPIRIN [Concomitant]

REACTIONS (20)
  - INJURY [None]
  - DYSPNOEA [None]
  - LUNG INFECTION [None]
  - PERIORBITAL HAEMATOMA [None]
  - FALL [None]
  - MYOCARDIAL INFARCTION [None]
  - CARDIAC OPERATION [None]
  - CHEST DISCOMFORT [None]
  - FEELING ABNORMAL [None]
  - MALAISE [None]
  - BLOOD CALCIUM INCREASED [None]
  - STRESS [None]
  - THERMAL BURN [None]
  - WEIGHT DECREASED [None]
  - RASH PRURITIC [None]
  - BACTERIAL INFECTION [None]
  - ALOPECIA [None]
  - HAIR GROWTH ABNORMAL [None]
  - STENT PLACEMENT [None]
  - HEAD INJURY [None]
